FAERS Safety Report 5975489-7 (Version None)
Quarter: 2008Q4

REPORT INFORMATION
  Report Type: 
  Country: None (occurrence: None)
  Receive Date: 20081202
  Receipt Date: 20081117
  Transmission Date: 20090506
  Serious: Yes (Hospitalization, Congenital Anomaly)
  Sender: FDA-Public Use
  Company Number: TR-NOVOPROD-257084

PATIENT
  Sex: Male
  Weight: 1.25 kg

DRUGS (3)
  1. NOVOLOG MIX 70/30 [Suspect]
     Indication: TYPE 2 DIABETES MELLITUS
     Route: 064
     Dates: start: 20050412
  2. INSULATARD HM PENFILL [Concomitant]
     Indication: TYPE 2 DIABETES MELLITUS
     Route: 064
  3. DOXAPRAM [Concomitant]

REACTIONS (5)
  - CONGENITAL CORONARY ARTERY MALFORMATION [None]
  - ENZYME ABNORMALITY [None]
  - GENITALIA EXTERNAL AMBIGUOUS [None]
  - HEMIVERTEBRA [None]
  - RENAL FUSION ANOMALY [None]
